FAERS Safety Report 19853506 (Version 3)
Quarter: 2021Q4

REPORT INFORMATION
  Report Type: Report from Study
  Country: US (occurrence: US)
  Receive Date: 20210919
  Receipt Date: 20211029
  Transmission Date: 20220303
  Serious: Yes (Hospitalization)
  Sender: FDA-Public Use
  Company Number: NVSC2021US207596

PATIENT
  Age: 56 Year
  Sex: Female
  Weight: 58.96 kg

DRUGS (1)
  1. TREPROSTINIL [Suspect]
     Active Substance: TREPROSTINIL
     Indication: Pulmonary arterial hypertension
     Dosage: UNK UNK (15 NG/KG/MIN), CONT
     Route: 058
     Dates: start: 20210625

REACTIONS (7)
  - Cough [Recovered/Resolved with Sequelae]
  - Scleroderma [Unknown]
  - Fatigue [Unknown]
  - Skin disorder [Unknown]
  - Weight decreased [Unknown]
  - Injection site pain [Unknown]
  - Injection site erythema [Unknown]

NARRATIVE: CASE EVENT DATE: 20210923
